FAERS Safety Report 8558712-4 (Version None)
Quarter: 2012Q3

REPORT INFORMATION
  Report Type: 
  Country: None (occurrence: None)
  Receive Date: 20120801
  Receipt Date: 20120727
  Transmission Date: 20120928
  Serious: Yes (Other)
  Sender: FDA-Public Use
  Company Number: US-009507513-1207USA012283

PATIENT

DRUGS (3)
  1. ASMANEX TWISTHALER [Suspect]
     Dosage: 200 MICROGRAM, BID
     Route: 050
  2. CEFTIN [Concomitant]
     Dosage: UNK
  3. SYNTHROID [Concomitant]
     Dosage: UNK

REACTIONS (5)
  - NASAL DISCOMFORT [None]
  - HYPOAESTHESIA ORAL [None]
  - DYSPNOEA [None]
  - CHEST PAIN [None]
  - RESPIRATORY TRACT INFLAMMATION [None]
